FAERS Safety Report 7981755-6 (Version None)
Quarter: 2011Q4

REPORT INFORMATION
  Report Type: 
  Country: None (occurrence: None)
  Receive Date: 20111215
  Receipt Date: 20111207
  Transmission Date: 20120403
  Serious: Yes (Hospitalization)
  Sender: FDA-Public Use
  Company Number: IT-JNJFOC-20111105240

PATIENT
  Sex: Male
  Weight: 45 kg

DRUGS (1)
  1. HALDOL [Suspect]
     Indication: ACCIDENTAL EXPOSURE
     Dosage: 0.2%
     Route: 048
     Dates: start: 20111108, end: 20111108

REACTIONS (3)
  - ACCIDENTAL DRUG INTAKE BY CHILD [None]
  - DYSKINESIA [None]
  - TORTICOLLIS [None]
